FAERS Safety Report 24802771 (Version 1)
Quarter: 2025Q1

REPORT INFORMATION
  Report Type: Spontaneous
  Country: US (occurrence: US)
  Receive Date: 20250103
  Receipt Date: 20250103
  Transmission Date: 20250409
  Serious: Yes (Hospitalization)
  Sender: SANOFI AVENTIS
  Company Number: US-SA-2025SA001981

PATIENT
  Sex: Female
  Weight: 89.55 kg

DRUGS (1)
  1. DUPIXENT [Suspect]
     Active Substance: DUPILUMAB
     Indication: Asthma
     Dosage: 600 MG, QOW
     Route: 058

REACTIONS (2)
  - Hospitalisation [Unknown]
  - Incorrect dose administered [Unknown]
